FAERS Safety Report 6820713-1 (Version None)
Quarter: 2010Q3

REPORT INFORMATION
  Report Type: 
  Country: None (occurrence: None)
  Receive Date: 20100707
  Receipt Date: 20100630
  Transmission Date: 20110219
  Serious: Yes (Death, Other)
  Sender: FDA-Public Use
  Company Number: US-AMGEN-QUU408756

PATIENT
  Sex: Male

DRUGS (8)
  1. NPLATE [Suspect]
     Indication: IDIOPATHIC THROMBOCYTOPENIC PURPURA
     Dates: start: 20091111, end: 20100310
  2. CORTICOSTEROIDS [Concomitant]
     Dates: start: 20090417
  3. PREDNISONE [Concomitant]
     Dates: start: 20090417
  4. LISINOPRIL [Concomitant]
  5. CHRONDROITAN + GLUCOSAMINE [Concomitant]
  6. MSM [Concomitant]
  7. CASODEX (ASTRA ZENECA) [Concomitant]
     Dates: start: 20081201
  8. LUPRON [Concomitant]
     Dates: start: 20081201

REACTIONS (2)
  - DEATH [None]
  - GASTRIC HAEMORRHAGE [None]
